FAERS Safety Report 7743459-4 (Version None)
Quarter: 2011Q3

REPORT INFORMATION
  Report Type: 
  Country: None (occurrence: None)
  Receive Date: 20110909
  Receipt Date: 20110909
  Transmission Date: 20111222
  Serious: Yes (Hospitalization)
  Sender: FDA-Public Use
  Company Number: None

PATIENT
  Sex: Male
  Weight: 60.78 kg

DRUGS (2)
  1. CARBOPLATIN [Suspect]
     Dosage: 502 MG
     Dates: end: 20110811
  2. TAXOL [Suspect]
     Dosage: 319 MG
     Dates: end: 20110811

REACTIONS (7)
  - HAEMODYNAMIC INSTABILITY [None]
  - NEUTROPENIA [None]
  - THROMBOSIS [None]
  - AORTIC CALCIFICATION [None]
  - HYPERCOAGULATION [None]
  - ARTERIOSCLEROSIS [None]
  - PROTEIN S DECREASED [None]
